FAERS Safety Report 5890740-X (Version None)
Quarter: 2008Q3

REPORT INFORMATION
  Report Type: 
  Country: None (occurrence: None)
  Receive Date: 20080922
  Receipt Date: 20080915
  Transmission Date: 20090109
  Serious: Yes (Hospitalization, Other)
  Sender: FDA-Public Use
  Company Number: US-BAYER-200828373NA

PATIENT
  Age: 28 Year
  Sex: Female
  Weight: 132 kg

DRUGS (2)
  1. MIRENA [Suspect]
     Indication: CONTRACEPTION
     Route: 015
     Dates: start: 20080313, end: 20080621
  2. YAZ [Concomitant]
     Indication: VAGINAL HAEMORRHAGE
     Route: 048
     Dates: start: 20080623

REACTIONS (4)
  - ABDOMINAL PAIN LOWER [None]
  - INTRA-UTERINE CONTRACEPTIVE DEVICE EXPELLED [None]
  - UTERINE MASS [None]
  - VAGINAL HAEMORRHAGE [None]
